FAERS Safety Report 17411809 (Version 2)
Quarter: 2020Q1

REPORT INFORMATION
  Report Type: Spontaneous
  Country: IN (occurrence: IN)
  Receive Date: 20200213
  Receipt Date: 20200226
  Transmission Date: 20200409
  Serious: Yes (Hospitalization, Other)
  Sender: FDA-Public Use
  Company Number: IN-MACLEODS PHARMACEUTICALS US LTD-MAC2020025065

PATIENT

DRUGS (1)
  1. TRIAMCINOLONE [Suspect]
     Active Substance: TRIAMCINOLONE
     Indication: POST PROCEDURAL INFLAMMATION
     Dosage: SUSPENSION FOR INJECTION
     Route: 031

REACTIONS (8)
  - Keratitis fungal [Recovered/Resolved]
  - Cataract [Unknown]
  - Corneal opacity [Unknown]
  - Injection site reaction [Recovered/Resolved]
  - Necrotising scleritis [Recovered/Resolved]
  - Scleral deposits [Recovered/Resolved]
  - Scleral disorder [Recovered/Resolved]
  - Aspergillus infection [Recovered/Resolved]
